FAERS Safety Report 4925379-3 (Version None)
Quarter: 2006Q1

REPORT INFORMATION
  Report Type: 
  Country: None (occurrence: None)
  Receive Date: 20060228
  Receipt Date: 20050210
  Transmission Date: 20060701
  Serious: Yes (Hospitalization)
  Sender: FDA-Public Use
  Company Number: US-GLAXOSMITHKLINE-A0544942A

PATIENT
  Age: 12 Year
  Sex: Male
  Weight: 40 kg

DRUGS (4)
  1. LAMICTAL [Suspect]
     Indication: BIPOLAR DISORDER
     Route: 048
     Dates: start: 20041101, end: 20041125
  2. ZOLOFT [Concomitant]
  3. RITALIN [Concomitant]
  4. CLONIDINE [Concomitant]

REACTIONS (24)
  - ADVERSE DRUG REACTION [None]
  - CONJUNCTIVITIS INFECTIVE [None]
  - COUGH [None]
  - DIARRHOEA [None]
  - DRY SKIN [None]
  - ERYTHEMA [None]
  - HEADACHE [None]
  - LETHARGY [None]
  - LISTLESS [None]
  - MALAISE [None]
  - MYALGIA [None]
  - NAUSEA [None]
  - ORAL PUSTULE [None]
  - ORAL SOFT TISSUE DISORDER [None]
  - PALATAL DISORDER [None]
  - PRURITUS [None]
  - PYREXIA [None]
  - RASH ERYTHEMATOUS [None]
  - RASH MACULO-PAPULAR [None]
  - RHINORRHOEA [None]
  - SCLERAL HYPERAEMIA [None]
  - STEVENS-JOHNSON SYNDROME [None]
  - THROAT LESION [None]
  - VIRAL INFECTION [None]
